FAERS Safety Report 14379038 (Version 1)
Quarter: 2018Q1

REPORT INFORMATION
  Report Type: Spontaneous
  Country: FR (occurrence: FR)
  Receive Date: 20180112
  Receipt Date: 20180112
  Transmission Date: 20180509
  Serious: Yes (Other)
  Sender: FDA-Public Use
  Company Number: FR-UCBSA-2018000298

PATIENT
  Age: 6 Month
  Sex: Female
  Weight: 8 kg

DRUGS (6)
  1. KEPPRA [Suspect]
     Active Substance: LEVETIRACETAM
     Dosage: 160 MG, 2X/DAY (BID)
     Dates: start: 201709, end: 20171208
  2. KEPPRA [Suspect]
     Active Substance: LEVETIRACETAM
     Dosage: 60 MG, 2X/DAY (BID)
     Dates: start: 20171210, end: 20171210
  3. KEPPRA [Suspect]
     Active Substance: LEVETIRACETAM
     Indication: EPILEPSY
     Dosage: 300 ML (UNSUITABLE DOSE FORM)
     Dates: start: 201707, end: 201709
  4. RIVOTRIL [Concomitant]
     Active Substance: CLONAZEPAM
     Indication: PRODUCT USED FOR UNKNOWN INDICATION
  5. DEPAKINE [Concomitant]
     Active Substance: VALPROATE SODIUM
  6. KEPPRA [Suspect]
     Active Substance: LEVETIRACETAM
     Dosage: 100 MG, 2X/DAY (BID)
     Dates: start: 20171209, end: 20171209

REACTIONS (3)
  - Musculoskeletal stiffness [Not Recovered/Not Resolved]
  - Intercepted medication error [Unknown]
  - Seizure [Not Recovered/Not Resolved]

NARRATIVE: CASE EVENT DATE: 201707
